FAERS Safety Report 5322580-4 (Version None)
Quarter: 2007Q1

REPORT INFORMATION
  Report Type: 
  Country: None (occurrence: None)
  Receive Date: 20070220
  Receipt Date: 20061101
  Transmission Date: 20070707
  Serious: No
  Sender: FDA-Public Use
  Company Number: TPA2006A01959

PATIENT
  Sex: Female

DRUGS (1)
  1. ROZEREM [Suspect]
     Dosage: 1 DOSE, PER ORAL
     Route: 048

REACTIONS (6)
  - FEELING HOT [None]
  - HYPERHIDROSIS [None]
  - IDIOSYNCRATIC DRUG REACTION [None]
  - INSOMNIA [None]
  - NERVOUSNESS [None]
  - PSYCHOMOTOR HYPERACTIVITY [None]
